FAERS Safety Report 6267718-X (Version None)
Quarter: 2009Q3

REPORT INFORMATION
  Report Type: 
  Country: None (occurrence: None)
  Receive Date: 20090714
  Receipt Date: 20090706
  Transmission Date: 20100115
  Serious: Yes (Other)
  Sender: FDA-Public Use
  Company Number: PHHY2009AU27657

PATIENT
  Sex: Male

DRUGS (2)
  1. ACLASTA [Suspect]
  2. TAMBOCOR [Concomitant]

REACTIONS (5)
  - ARRHYTHMIA [None]
  - BALANCE DISORDER [None]
  - PALPITATIONS [None]
  - SYNCOPE [None]
  - TENSION HEADACHE [None]
